FAERS Safety Report 9417881 (Version 1)
Quarter: 2013Q3

REPORT INFORMATION
  Report Type: Spontaneous
  Country: JP (occurrence: JP)
  Receive Date: 20130724
  Receipt Date: 20130724
  Transmission Date: 20140515
  Serious: Yes (Other)
  Sender: FDA-Public Use
  Company Number: JP-BAXTER-2013BAX028779

PATIENT
  Sex: Male
  Weight: 97 kg

DRUGS (1)
  1. ADVATE 1000 [Suspect]
     Indication: FACTOR VIII DEFICIENCY
     Route: 042

REACTIONS (2)
  - Factor VIII inhibition [Not Recovered/Not Resolved]
  - Haemorrhage [Unknown]
